FAERS Safety Report 17749317 (Version 2)
Quarter: 2023Q1

REPORT INFORMATION
  Report Type: Spontaneous
  Country: US (occurrence: US)
  Receive Date: 20200506
  Receipt Date: 20230221
  Transmission Date: 20230417
  Serious: Yes (Other)
  Sender: FDA-Public Use
  Company Number: US-GILEAD-2020-0463150

PATIENT
  Age: 54 Year
  Sex: Male

DRUGS (2)
  1. TRUVADA [Suspect]
     Active Substance: EMTRICITABINE\TENOFOVIR DISOPROXIL FUMARATE
     Indication: HIV infection
     Dosage: UNK
     Route: 048
     Dates: start: 200408, end: 201909
  2. TRUVADA [Suspect]
     Active Substance: EMTRICITABINE\TENOFOVIR DISOPROXIL FUMARATE
     Dosage: UNK
     Route: 048
     Dates: start: 20050101, end: 20110101

REACTIONS (6)
  - Multiple fractures [Unknown]
  - Osteonecrosis [Unknown]
  - Tooth loss [Unknown]
  - Bone loss [Unknown]
  - Bone density decreased [Unknown]
  - Protein total abnormal [Not Recovered/Not Resolved]

NARRATIVE: CASE EVENT DATE: 20100701
